FAERS Safety Report 23371545 (Version 1)
Quarter: 2024Q1

REPORT INFORMATION
  Report Type: Report from Study
  Country: US (occurrence: None)
  Receive Date: 20240105
  Receipt Date: 20240105
  Transmission Date: 20240409
  Serious: Yes (Death)
  Sender: FDA-Public Use
  Company Number: 2024A002345

PATIENT
  Age: 25820 Day
  Weight: 53.1 kg

DRUGS (6)
  1. FASENRA [Suspect]
     Active Substance: BENRALIZUMAB
     Indication: Asthma
     Dosage: INJECT THE CONTENTS OF 1 SYRINGE (30 MG) UNDER THE SKIN EVERY 8 WEEKS
     Route: 058
  2. ROBAXIN [Concomitant]
     Active Substance: METHOCARBAMOL
  3. ACETAMINOPHEN\HYDROCODONE BITARTRATE [Concomitant]
     Active Substance: ACETAMINOPHEN\HYDROCODONE BITARTRATE
  4. GABAPENTIN [Concomitant]
     Active Substance: GABAPENTIN
  5. XARELTO [Concomitant]
     Active Substance: RIVAROXABAN
  6. TYMLOS [Concomitant]
     Active Substance: ABALOPARATIDE

REACTIONS (1)
  - Death [Fatal]

NARRATIVE: CASE EVENT DATE: 20231226
